FAERS Safety Report 10103499 (Version 2)
Quarter: 2014Q2

REPORT INFORMATION
  Report Type: Spontaneous
  Country: US (occurrence: US)
  Receive Date: 20140424
  Receipt Date: 20140424
  Transmission Date: 20141212
  Serious: Yes (Hospitalization)
  Sender: FDA-Public Use
  Company Number: US-UCBSA-116584

PATIENT
  Age: 48 Year
  Sex: Male
  Weight: 48 kg

DRUGS (4)
  1. CIMZIA [Suspect]
     Indication: CROHN^S DISEASE
     Dates: start: 201307
  2. PREDNISOLONE [Concomitant]
     Dates: start: 201403
  3. FENTANYL [Concomitant]
     Indication: BACK PAIN
  4. PERCOCET [Concomitant]
     Indication: BACK PAIN
     Dosage: ONCE EVERY 3HOURS PER NIGHT
     Route: 048

REACTIONS (3)
  - Crohn^s disease [Recovered/Resolved]
  - Abdominal pain [Recovering/Resolving]
  - Infrequent bowel movements [Recovering/Resolving]
